FAERS Safety Report 5472616-5 (Version None)
Quarter: 2007Q4

REPORT INFORMATION
  Report Type: 
  Country: None (occurrence: None)
  Receive Date: 20071001
  Receipt Date: 20060601
  Transmission Date: 20080405
  Serious: No
  Sender: FDA-Public Use
  Company Number: US-ASTRAZENECA-2006UW08865

PATIENT
  Sex: Female
  Weight: 69.4 kg

DRUGS (3)
  1. ARIMIDEX [Suspect]
     Indication: BREAST CANCER
     Route: 048
     Dates: start: 20030801
  2. ATENOLOL [Concomitant]
  3. GAS X [Concomitant]

REACTIONS (2)
  - AMNESIA [None]
  - FEELING ABNORMAL [None]
